FAERS Safety Report 6780116-5 (Version None)
Quarter: 2010Q2

REPORT INFORMATION
  Report Type: 
  Country: None (occurrence: None)
  Receive Date: 20100618
  Receipt Date: 20100611
  Transmission Date: 20101027
  Serious: Yes (Hospitalization, Other)
  Sender: FDA-Public Use
  Company Number: US-GENENTECH-303009

PATIENT
  Sex: Female
  Weight: 68.2 kg

DRUGS (4)
  1. XOLAIR [Suspect]
     Indication: ASTHMA
     Dosage: UNK
     Route: 058
     Dates: start: 20090909
  2. SYMBICORT [Concomitant]
     Indication: DRUG USE FOR UNKNOWN INDICATION
  3. XOPENEX [Concomitant]
     Indication: DRUG USE FOR UNKNOWN INDICATION
  4. XYZAL [Concomitant]
     Indication: DRUG USE FOR UNKNOWN INDICATION

REACTIONS (3)
  - ANAPHYLACTIC SHOCK [None]
  - MYOCARDIAL INFARCTION [None]
  - THROMBOSIS [None]
